FAERS Safety Report 18454103 (Version 6)
Quarter: 2021Q1

REPORT INFORMATION
  Report Type: Report from Study
  Country: CA (occurrence: CA)
  Receive Date: 20201102
  Receipt Date: 20210315
  Transmission Date: 20210419
  Serious: Yes (Other)
  Sender: FDA-Public Use
  Company Number: CA-JNJFOC-20200805575

PATIENT
  Age: 66 Year
  Sex: Female
  Weight: 77 kg

DRUGS (6)
  1. REMICADE [Suspect]
     Active Substance: INFLIXIMAB
     Indication: RHEUMATOID ARTHRITIS
     Route: 042
     Dates: start: 20080219
  2. REMICADE [Suspect]
     Active Substance: INFLIXIMAB
     Dosage: KHM76012? EXPIRY: 01?JUL?2023
     Route: 042
  3. REMICADE [Suspect]
     Active Substance: INFLIXIMAB
     Route: 042
  4. PREDNISONE. [Concomitant]
     Active Substance: PREDNISONE
     Indication: PRODUCT USED FOR UNKNOWN INDICATION
     Route: 065
     Dates: start: 20201223
  5. PREDNISONE. [Concomitant]
     Active Substance: PREDNISONE
     Dosage: FOR 1 WEEK
     Route: 065
  6. PREDNISONE. [Concomitant]
     Active Substance: PREDNISONE
     Dosage: FOR 1 WEEK
     Route: 065

REACTIONS (3)
  - Post procedural erythema [Recovered/Resolved]
  - Rheumatoid arthritis [Unknown]
  - Breast cancer [Unknown]

NARRATIVE: CASE EVENT DATE: 202103
